FAERS Safety Report 9541895 (Version 1)
Quarter: 2013Q2

REPORT INFORMATION
  Report Type: Spontaneous
  Country: US (occurrence: None)
  Receive Date: 20130524
  Receipt Date: 20130524
  Transmission Date: 20140414
  Serious: No
  Sender: FDA-Public Use
  Company Number: PHEH2013US003630

PATIENT
  Age: 42 Year
  Sex: Female
  Weight: 68 kg

DRUGS (4)
  1. GILENYA (FINGOLIMOD) CAPSULE, 0.5MG [Suspect]
     Route: 048
     Dates: start: 201109
  2. CONCERTA (METHYLPHENIDATE HYDROCHLORIDE) [Concomitant]
  3. LIALDA (MESALAZINE) [Concomitant]
  4. OMEPRAZOLE (OMEPRAZOLE) [Concomitant]

REACTIONS (4)
  - Ocular discomfort [None]
  - Visual impairment [None]
  - Stress [None]
  - Vision blurred [None]
